FAERS Safety Report 7781971-2 (Version None)
Quarter: 2011Q3

REPORT INFORMATION
  Report Type: 
  Country: None (occurrence: None)
  Receive Date: 20110927
  Receipt Date: 20110913
  Transmission Date: 20111222
  Serious: Yes (Hospitalization)
  Sender: FDA-Public Use
  Company Number: PHHY2011FR82149

PATIENT
  Sex: Male

DRUGS (16)
  1. BACTRIM [Suspect]
     Dosage: UNK UKN, UNK
     Route: 048
     Dates: start: 20110712
  2. GANCICLOVIR SODIUM [Suspect]
     Dosage: 300 MG, 2 DF DAILY
     Route: 042
     Dates: start: 20110808, end: 20110829
  3. NEORAL [Suspect]
     Indication: HEART TRANSPLANT
     Dosage: UNK UKN, UNK
     Route: 048
     Dates: start: 20110705
  4. ACTISKENAN [Concomitant]
  5. MYCOPHENOLATE MOFETIL (CELLCEPT) [Suspect]
     Dosage: UNK UKN, UNK
     Dates: start: 20110708, end: 20110819
  6. ASPEGIC 325 [Concomitant]
  7. ESOMEPRAZOLE SODIUM [Concomitant]
  8. FOSCARNET [Concomitant]
  9. FILGRASTIM [Concomitant]
  10. IRBESARTAN [Concomitant]
  11. PREVISCAN [Concomitant]
  12. ATORVASTATIN CALCIUM [Concomitant]
  13. LOVENOX [Concomitant]
  14. PREDNISONE [Concomitant]
     Dosage: 40 MG, DAILY
  15. VFEND [Concomitant]
     Dosage: UNK
     Dates: start: 20110819, end: 20110822
  16. FOLIC ACID [Concomitant]

REACTIONS (9)
  - BLOOD CREATININE INCREASED [None]
  - NEUTROPENIA [None]
  - OESOPHAGEAL CANDIDIASIS [None]
  - HAEMATOTOXICITY [None]
  - PYREXIA [None]
  - HAEMOGLOBIN DECREASED [None]
  - LYMPHOCYTE COUNT DECREASED [None]
  - LUNG DISORDER [None]
  - CYTOMEGALOVIRUS HEPATITIS [None]
